FAERS Safety Report 9686795 (Version 3)
Quarter: 2013Q4

REPORT INFORMATION
  Report Type: Spontaneous
  Country: GB (occurrence: GB)
  Receive Date: 20131113
  Receipt Date: 20131211
  Transmission Date: 20140711
  Serious: Yes (Hospitalization, Other)
  Sender: FDA-Public Use
  Company Number: PHFR2013GB006388

PATIENT
  Age: 50 Year
  Sex: Female
  Weight: 79 kg

DRUGS (2)
  1. CLOZARIL [Suspect]
     Indication: SCHIZOPHRENIA
     Dosage: 350 MG, DAILY (IN DIVIDED DOSE OF 100 MG IN MORNING AND 250 MG IN THE NIGHT)
     Route: 048
     Dates: start: 20090901, end: 20131202
  2. VENLAFAXINE [Concomitant]
     Indication: DEPRESSION
     Dosage: 150 MG, DAILY
     Route: 048
     Dates: start: 20130227

REACTIONS (2)
  - Invasive ductal breast carcinoma [Recovering/Resolving]
  - Platelet count decreased [Unknown]
